FAERS Safety Report 5370400-4 (Version None)
Quarter: 2007Q2

REPORT INFORMATION
  Report Type: 
  Country: None (occurrence: None)
  Receive Date: 20070625
  Receipt Date: 20070625
  Transmission Date: 20071010
  Serious: Yes (Hospitalization)
  Sender: FDA-Public Use
  Company Number: None

PATIENT
  Sex: Male
  Weight: 199 kg

DRUGS (7)
  1. MORPHINE [Suspect]
     Indication: PAIN
     Dosage: 30MG QHS (PO)
     Route: 048
  2. MORPHINE [Suspect]
     Indication: BREAKTHROUGH PAIN
     Dosage: 10 MG PRN SUBLINGUAL
     Route: 058
  3. FUROSEMIDE [Concomitant]
  4. WARFARIN SODIUM [Concomitant]
  5. METFORMIN HCL [Concomitant]
  6. LISINOPRIL [Concomitant]
  7. NPH ILETIN II [Concomitant]

REACTIONS (2)
  - HYPERSOMNIA [None]
  - RENAL FAILURE ACUTE [None]
